FAERS Safety Report 5936781-5 (Version None)
Quarter: 2008Q4

REPORT INFORMATION
  Report Type: 
  Country: None (occurrence: None)
  Receive Date: 20081029
  Receipt Date: 20081021
  Transmission Date: 20090506
  Serious: Yes (Hospitalization)
  Sender: FDA-Public Use
  Company Number: 2008SP002611

PATIENT
  Age: 65 Year
  Sex: Female

DRUGS (12)
  1. LUNESTA [Suspect]
     Indication: INSOMNIA
     Dosage: 1 MG; HS; ORAL, 2 MG; HS; ORAL, 3 MG; HS; ORAL
     Route: 048
     Dates: start: 20050101, end: 20050101
  2. LUNESTA [Suspect]
     Indication: INSOMNIA
     Dosage: 1 MG; HS; ORAL, 2 MG; HS; ORAL, 3 MG; HS; ORAL
     Route: 048
     Dates: start: 20060301, end: 20080801
  3. LUNESTA [Suspect]
     Indication: INSOMNIA
     Dosage: 1 MG; HS; ORAL, 2 MG; HS; ORAL, 3 MG; HS; ORAL
     Route: 048
     Dates: start: 20080801, end: 20080827
  4. LUNESTA [Suspect]
     Indication: INSOMNIA
     Dosage: 1 MG; HS; ORAL, 2 MG; HS; ORAL, 3 MG; HS; ORAL
     Route: 048
  5. LUNESTA [Suspect]
     Indication: INSOMNIA
     Dosage: 1 MG; HS; ORAL, 2 MG; HS; ORAL, 3 MG; HS; ORAL
     Route: 048
     Dates: start: 20080828
  6. SYNTHROID [Concomitant]
  7. VITAMIN A [Concomitant]
  8. PREMARIN [Concomitant]
  9. SIMVASTATIN [Concomitant]
  10. ACTONEL [Concomitant]
  11. MAGNESIUM CITRATE [Concomitant]
  12. CITRUCEL [Concomitant]

REACTIONS (2)
  - OVARIAN ADHESION [None]
  - OVARIAN CYST [None]
